FAERS Safety Report 22113522 (Version 5)
Quarter: 2024Q3

REPORT INFORMATION
  Report Type: Other
  Country: AU (occurrence: AU)
  Receive Date: 20230320
  Receipt Date: 20240710
  Transmission Date: 20241016
  Serious: No
  Sender: TOLMAR
  Company Number: AU-TOLMAR, INC.-23AU039101

PATIENT
  Sex: Male

DRUGS (1)
  1. ELIGARD [Suspect]
     Active Substance: LEUPROLIDE ACETATE
     Indication: Prostate cancer
     Dosage: 22.5 MILLIGRAM, Q 3 MONTH
     Dates: start: 20230221

REACTIONS (7)
  - Productive cough [Not Recovered/Not Resolved]
  - Dyspnoea [Not Recovered/Not Resolved]
  - Hot flush [Not Recovered/Not Resolved]
  - Weight increased [Unknown]
  - Fatigue [Unknown]
  - Dizziness [Unknown]
  - Gynaecomastia [Unknown]
